FAERS Safety Report 4510444-5 (Version None)
Quarter: 2004Q4

REPORT INFORMATION
  Report Type: 
  Country: None (occurrence: None)
  Receive Date: 20041119
  Receipt Date: 20041028
  Transmission Date: 20050328
  Serious: Yes (Death)
  Sender: FDA-Public Use
  Company Number: US_0411107587

PATIENT
  Age: 85 Year
  Sex: Male

DRUGS (2)
  1. ZYPREXA [Suspect]
     Indication: MAJOR DEPRESSION
     Dosage: 5 MG/1 DAY
     Route: 048
     Dates: start: 20041022, end: 20041022
  2. SERTRALINE HCL [Concomitant]

REACTIONS (5)
  - CARDIO-RESPIRATORY ARREST [None]
  - CONFUSIONAL STATE [None]
  - HYPONATRAEMIA [None]
  - SEDATION [None]
  - SOMNOLENCE [None]
